FAERS Safety Report 21342750 (Version 2)
Quarter: 2022Q3

REPORT INFORMATION
  Report Type: Spontaneous
  Country: FR (occurrence: FR)
  Receive Date: 20220916
  Receipt Date: 20220922
  Transmission Date: 20221027
  Serious: Yes (Hospitalization)
  Sender: FDA-Public Use
  Company Number: FR-MYLANLABS-2022M1093672

PATIENT
  Age: 42 Year
  Sex: Female

DRUGS (4)
  1. LOPERAMIDE [Suspect]
     Active Substance: LOPERAMIDE
     Indication: Diarrhoea
     Dosage: UNK, INITIAL DOSE NOT STATED
     Route: 065
  2. LOPERAMIDE [Suspect]
     Active Substance: LOPERAMIDE
     Indication: Anal incontinence
     Dosage: UNK, MAXIMUM DOSE
     Route: 065
  3. CODEINE [Suspect]
     Active Substance: CODEINE
     Indication: Diarrhoea
     Dosage: UNK, INITIAL DOSE NOT STATED
     Route: 065
  4. CODEINE [Suspect]
     Active Substance: CODEINE
     Indication: Anal incontinence
     Dosage: UNK, MAXIMUM DOSE
     Route: 065

REACTIONS (1)
  - Drug ineffective [Unknown]
